FAERS Safety Report 18910637 (Version 1)
Quarter: 2021Q1

REPORT INFORMATION
  Report Type: Spontaneous
  Country: US (occurrence: US)
  Receive Date: 20210218
  Receipt Date: 20210218
  Transmission Date: 20210420
  Serious: Yes (Other)
  Sender: FDA-Public Use
  Company Number: NVSC2021US032915

PATIENT
  Sex: Male

DRUGS (1)
  1. PROMACTA [Suspect]
     Active Substance: ELTROMBOPAG OLAMINE
     Indication: ILLNESS
     Dosage: 50 MG, QD
     Route: 048
     Dates: start: 202102

REACTIONS (2)
  - Paralysis [Unknown]
  - Musculoskeletal disorder [Unknown]
